FAERS Safety Report 7419907-6 (Version None)
Quarter: 2011Q2

REPORT INFORMATION
  Report Type: 
  Country: None (occurrence: None)
  Receive Date: 20110413
  Receipt Date: 20110413
  Transmission Date: 20111010
  Serious: Yes (Hospitalization)
  Sender: FDA-Public Use
  Company Number: None

PATIENT
  Age: 47 Year
  Sex: Female
  Weight: 70.7 kg

DRUGS (12)
  1. LISINOPRIL [Concomitant]
  2. CIPRO [Suspect]
     Indication: ANXIETY
     Dosage: PO CHRONIC
     Route: 048
  3. AMBIEN [Suspect]
     Indication: INSOMNIA
     Dosage: 1 TABLET QHS PRN PO CHRONIC
     Route: 048
  4. FOLIC ACID [Concomitant]
  5. IMODIUM [Concomitant]
  6. HYOSCYAMINE [Concomitant]
  7. CIPRO [Concomitant]
  8. BENADRYL [Concomitant]
  9. KLONAPIN [Concomitant]
  10. LEXAPRO [Concomitant]
  11. COREG [Concomitant]
  12. AZO-CRANBERRY [Concomitant]

REACTIONS (4)
  - CONFUSIONAL STATE [None]
  - SLUGGISHNESS [None]
  - ASPARTATE AMINOTRANSFERASE INCREASED [None]
  - DRUG INTERACTION [None]
